FAERS Safety Report 5019372-2 (Version None)
Quarter: 2006Q2

REPORT INFORMATION
  Report Type: 
  Country: None (occurrence: None)
  Receive Date: 20060606
  Receipt Date: 20060522
  Transmission Date: 20061013
  Serious: Yes (Disabling)
  Sender: FDA-Public Use
  Company Number: FRWYE645223MAY06

PATIENT
  Age: 40 Year

DRUGS (1)
  1. ENBREL [Suspect]
     Indication: DRUG USE FOR UNKNOWN INDICATION
     Dosage: 25 MG; FREQUENCY UNSPEC.
     Route: 058

REACTIONS (3)
  - ASTHENIA [None]
  - COLITIS [None]
  - FLATULENCE [None]
